FAERS Safety Report 8214863-5 (Version None)
Quarter: 2012Q1

REPORT INFORMATION
  Report Type: 
  Country: None (occurrence: None)
  Receive Date: 20120316
  Receipt Date: 20120307
  Transmission Date: 20120608
  Serious: Yes (Other)
  Sender: FDA-Public Use
  Company Number: US-SHIONOGI, INC-2012000105

PATIENT

DRUGS (2)
  1. VYVANSE [Concomitant]
     Dosage: 40 MG, QD
  2. KAPVAY [Suspect]
     Indication: ATTENTION DEFICIT/HYPERACTIVITY DISORDER
     Dosage: 0.1 MG, QD
     Dates: start: 20120301

REACTIONS (3)
  - SOMNAMBULISM [None]
  - NIGHTMARE [None]
  - HALLUCINATION [None]
